FAERS Safety Report 7665215-8 (Version None)
Quarter: 2011Q3

REPORT INFORMATION
  Report Type: 
  Country: None (occurrence: None)
  Receive Date: 20110806
  Receipt Date: 20110411
  Transmission Date: 20111222
  Serious: No
  Sender: FDA-Public Use
  Company Number: US-ABBOTT-11P-163-0718414-00

PATIENT
  Sex: Female
  Weight: 69.462 kg

DRUGS (2)
  1. NIASPAN [Suspect]
  2. NIASPAN [Suspect]
     Indication: ARTERIAL OCCLUSIVE DISEASE

REACTIONS (5)
  - DIZZINESS [None]
  - ERYTHEMA [None]
  - HYPOTENSION [None]
  - PRURITUS [None]
  - SWELLING FACE [None]
